FAERS Safety Report 14313316 (Version 2)
Quarter: 2018Q1

REPORT INFORMATION
  Report Type: Spontaneous
  Country: US (occurrence: US)
  Receive Date: 20171221
  Receipt Date: 20180212
  Transmission Date: 20180509
  Serious: Yes (Other)
  Sender: FDA-Public Use
  Company Number: US-DUCHESNAY INC.-2037558

PATIENT
  Age: 55 Year
  Sex: Female

DRUGS (9)
  1. PRIMROSE OIL [Concomitant]
  2. VOLTAREN [Concomitant]
     Active Substance: DICLOFENAC SODIUM
  3. BUPROPION XL [Concomitant]
     Active Substance: BUPROPION
  4. MELOXICAM. [Concomitant]
     Active Substance: MELOXICAM
  5. APRISO [Concomitant]
     Active Substance: MESALAMINE
  6. CARISOPRODOL. [Concomitant]
     Active Substance: CARISOPRODOL
  7. ZYRTEC [Concomitant]
     Active Substance: CETIRIZINE HYDROCHLORIDE
  8. OSPHENA [Suspect]
     Active Substance: OSPEMIFENE
     Indication: DYSPAREUNIA
     Route: 048
     Dates: start: 20171030, end: 20171206
  9. METOPROLOL SUCCINATE. [Concomitant]
     Active Substance: METOPROLOL SUCCINATE

REACTIONS (1)
  - Vaginal haemorrhage [Recovered/Resolved]

NARRATIVE: CASE EVENT DATE: 20171205
